FAERS Safety Report 19030116 (Version 1)
Quarter: 2021Q1

REPORT INFORMATION
  Report Type: Spontaneous
  Country: ES (occurrence: ES)
  Receive Date: 20210319
  Receipt Date: 20210319
  Transmission Date: 20210420
  Serious: Yes (Hospitalization)
  Sender: FDA-Public Use
  Company Number: ES-TEVA-2021-ES-1891511

PATIENT
  Age: 64 Year
  Sex: Male

DRUGS (1)
  1. SILDENAFILO 100 MG COMPRIMIDO [Suspect]
     Active Substance: SILDENAFIL
     Indication: ERECTILE DYSFUNCTION
     Dosage: NOT DAILY, 50MG
     Route: 048
     Dates: start: 2015, end: 2020

REACTIONS (2)
  - Visual acuity reduced [Recovering/Resolving]
  - Optic ischaemic neuropathy [Unknown]

NARRATIVE: CASE EVENT DATE: 20201225
